FAERS Safety Report 10025767 (Version 1)
Quarter: 2014Q1

REPORT INFORMATION
  Report Type: Spontaneous
  Country: US (occurrence: US)
  Receive Date: 20140320
  Receipt Date: 20140320
  Transmission Date: 20141002
  Serious: Yes (Hospitalization)
  Sender: FDA-Public Use
  Company Number: US-B.I. PHARMACEUTICALS,INC./RIDGEFIELD-2014-BI-11995BP

PATIENT
  Sex: Female

DRUGS (6)
  1. PRADAXA [Suspect]
     Indication: ATRIAL FIBRILLATION
     Dosage: 300 MG
     Route: 048
     Dates: start: 2009
  2. PRADAXA [Suspect]
     Indication: AORTIC VALVE DISEASE
  3. CRESTOR [Concomitant]
     Indication: BLOOD CHOLESTEROL INCREASED
     Route: 048
  4. LOSARTAN HCTZ [Concomitant]
     Indication: HYPERTENSION
     Dosage: STRENGTH AND DAILY DOSE: 50 MG/12.5 MG
     Route: 048
  5. LOSARTAN [Concomitant]
     Indication: HYPERTENSION
     Dosage: 25 MG
     Route: 048
  6. VITAMIN D 3 [Concomitant]
     Indication: VITAMIN SUPPLEMENTATION
     Dosage: 1000 U
     Route: 048

REACTIONS (2)
  - Aortic valve disease [Recovered/Resolved]
  - Off label use [Unknown]
